FAERS Safety Report 18599452 (Version 1)
Quarter: 2020Q4

REPORT INFORMATION
  Report Type: Spontaneous
  Country: US (occurrence: US)
  Receive Date: 20201210
  Receipt Date: 20201210
  Transmission Date: 20210114
  Serious: No
  Sender: FDA-Public Use
  Company Number: US-SA-2020SA354074

PATIENT

DRUGS (3)
  1. DUPIXENT [Suspect]
     Active Substance: DUPILUMAB
     Indication: LOWER RESPIRATORY TRACT INFECTION
  2. DUPIXENT [Suspect]
     Active Substance: DUPILUMAB
     Indication: BRONCHOPULMONARY ASPERGILLOSIS ALLERGIC
  3. DUPIXENT [Suspect]
     Active Substance: DUPILUMAB
     Indication: ASTHMA
     Dosage: 300 MG, QOW
     Route: 058
     Dates: start: 20201021

REACTIONS (3)
  - Product use issue [Unknown]
  - Product use in unapproved indication [Unknown]
  - Herpes zoster [Unknown]

NARRATIVE: CASE EVENT DATE: 2020
